FAERS Safety Report 4889574-4 (Version None)
Quarter: 2006Q1

REPORT INFORMATION
  Report Type: 
  Country: None (occurrence: None)
  Receive Date: 20060124
  Receipt Date: 20060116
  Transmission Date: 20060701
  Serious: Yes (Hospitalization, Other)
  Sender: FDA-Public Use
  Company Number: FR-JNJFOC-20050703599

PATIENT
  Sex: Female

DRUGS (4)
  1. RISPERDAL [Suspect]
     Dosage: 2 X 4MG TABLETS (8MG TOTAL)
     Route: 048
  2. LEPTICUR [Concomitant]
     Indication: DRUG USE FOR UNKNOWN INDICATION
     Route: 065
  3. DEPAMIDE [Concomitant]
     Indication: DRUG USE FOR UNKNOWN INDICATION
     Route: 065
  4. HEPTAMYL [Concomitant]
     Indication: HYPOTENSION
     Route: 065

REACTIONS (4)
  - ABORTION SPONTANEOUS [None]
  - DRUG EXPOSURE DURING PREGNANCY [None]
  - METRORRHAGIA [None]
  - PERSECUTORY DELUSION [None]
